FAERS Safety Report 13658704 (Version 1)
Quarter: 2017Q2

REPORT INFORMATION
  Report Type: Spontaneous
  Country: None (occurrence: US)
  Receive Date: 20170615
  Receipt Date: 20170615
  Transmission Date: 20170830
  Serious: Yes (Hospitalization)
  Sender: FDA-Public Use
  Company Number: None

PATIENT
  Age: 56 Year
  Sex: Female
  Weight: 72.4 kg

DRUGS (2)
  1. ENALAPRIL [Concomitant]
     Active Substance: ENALAPRIL
  2. CISPLATIN. [Suspect]
     Active Substance: CISPLATIN
     Dates: end: 20170607

REACTIONS (3)
  - Mouth ulceration [None]
  - Urinary tract infection [None]
  - Hypophagia [None]

NARRATIVE: CASE EVENT DATE: 20170607
